FAERS Safety Report 23795688 (Version 1)
Quarter: 2024Q2

REPORT INFORMATION
  Report Type: Spontaneous
  Country: US (occurrence: US)
  Receive Date: 20240429
  Receipt Date: 20240429
  Transmission Date: 20240716
  Serious: No
  Sender: FDA-Public Use
  Company Number: US-PFIZER INC-PV202300081962

PATIENT
  Age: 45 Year
  Sex: Female

DRUGS (2)
  1. NURTEC ODT [Suspect]
     Active Substance: RIMEGEPANT SULFATE
     Indication: Migraine
     Dosage: 75 MG, DAILY (UP TO 2 A DAY)
     Route: 048
  2. NURTEC ODT [Suspect]
     Active Substance: RIMEGEPANT SULFATE
     Dosage: DISSOLVE 1 TABLET ON OR UNDER THE TONGUE ONCE EVERY DAY AS NEEDED FOR MIGRAINE. MAX 1 TABLET PER DAY
     Route: 060

REACTIONS (3)
  - Prescribed overdose [Unknown]
  - Off label use [Unknown]
  - Drug ineffective [Unknown]
